FAERS Safety Report 6450719-6 (Version None)
Quarter: 2009Q4

REPORT INFORMATION
  Report Type: 
  Country: None (occurrence: None)
  Receive Date: 20091123
  Receipt Date: 20091117
  Transmission Date: 20100525
  Serious: Yes (Hospitalization)
  Sender: FDA-Public Use
  Company Number: FR-B.I. PHARMACEUTICALS,INC./RIDGEFIELD-2009-FF-00782FF

PATIENT
  Sex: Female

DRUGS (7)
  1. MICARDIS [Suspect]
     Dosage: 80 MG
     Route: 048
  2. HEMIGOXINE NATIVELLE [Suspect]
     Dosage: 0.125 MG
     Route: 048
     Dates: start: 20090101, end: 20090328
  3. CORDARONE [Suspect]
     Dosage: 100 MG
     Route: 048
     Dates: end: 20090328
  4. PREVISCAN [Concomitant]
     Route: 048
  5. VASTEN [Concomitant]
  6. MOPRAL [Concomitant]
  7. LEVOTHYROXINE SODIUM [Concomitant]

REACTIONS (4)
  - BRADYCARDIA [None]
  - FALL [None]
  - OPEN WOUND [None]
  - TRAUMATIC BRAIN INJURY [None]
